FAERS Safety Report 17868634 (Version 2)
Quarter: 2020Q3

REPORT INFORMATION
  Report Type: Spontaneous
  Country: AU (occurrence: IQ)
  Receive Date: 20200606
  Receipt Date: 20200710
  Transmission Date: 20201103
  Serious: Yes (Hospitalization, Other)
  Sender: FDA-Public Use
  Company Number: NVSC2020IQ157451

PATIENT
  Sex: Female
  Weight: 2.87 kg

DRUGS (1)
  1. PREDNISOLONE. [Suspect]
     Active Substance: PREDNISOLONE
     Indication: FOETAL EXPOSURE DURING PREGNANCY
     Dosage: (MATERNAL DOSE: 5 MG DAILY)
     Route: 064

REACTIONS (3)
  - Pemphigus [Recovering/Resolving]
  - Foetal exposure during pregnancy [Unknown]
  - Skin erosion [Recovering/Resolving]
